FAERS Safety Report 7533178-1 (Version None)
Quarter: 2011Q2

REPORT INFORMATION
  Report Type: 
  Country: None (occurrence: None)
  Receive Date: 20110608
  Receipt Date: 20020619
  Transmission Date: 20111010
  Serious: Yes (Death)
  Sender: FDA-Public Use
  Company Number: PHBS2002CL05884

PATIENT
  Age: 73 Year
  Sex: Male

DRUGS (6)
  1. BETACAR [Concomitant]
     Dosage: 100 MG, QD
  2. ALPRAZOLAM [Concomitant]
  3. VALSARTAN  AND HYDROCHLOROTHIAZIDE [Suspect]
     Route: 048
     Dates: start: 20000804
  4. GLYBURIDE [Concomitant]
  5. GLAUFRIN [Concomitant]
  6. LOTRIAL [Concomitant]

REACTIONS (6)
  - ARRHYTHMIA [None]
  - DIABETIC COMA [None]
  - ELECTROCARDIOGRAM ABNORMAL [None]
  - CARDIOVASCULAR DISORDER [None]
  - TACHYCARDIA [None]
  - INSOMNIA [None]
